FAERS Safety Report 20763470 (Version 2)
Quarter: 2022Q4

REPORT INFORMATION
  Report Type: Spontaneous
  Country: US (occurrence: US)
  Receive Date: 20220428
  Receipt Date: 20221206
  Transmission Date: 20230113
  Serious: No
  Sender: FDA-Public Use
  Company Number: US-PFIZER INC-202200477153

PATIENT
  Age: 68 Year
  Sex: Female
  Weight: 78.93 kg

DRUGS (4)
  1. IBRANCE [Suspect]
     Active Substance: PALBOCICLIB
     Indication: Breast cancer metastatic
     Dosage: 75 MG, CYCLIC ( 75 MG 1 TIME EACH DAY DAYS 1-14 FOLLOWED BY 7 DAYS)
     Route: 048
  2. IBRANCE [Suspect]
     Active Substance: PALBOCICLIB
     Indication: Malignant neoplasm progression
     Dosage: 75 MG, CYCLIC (ONCE DAILY FOR 21 DAYS THEN OFF FOR A WEEK)
     Dates: start: 202111
  3. LETROZOLE [Concomitant]
     Active Substance: LETROZOLE
     Indication: Breast cancer
     Dosage: 2.5 MG, 1X/DAY
  4. LEVOTHYROXINE [Concomitant]
     Active Substance: LEVOTHYROXINE
     Dosage: 88 UG, CYCLIC (MONDAY-SATURDAY, SKIPS SUNDAY)

REACTIONS (1)
  - Full blood count abnormal [Unknown]
